FAERS Safety Report 22750813 (Version 2)
Quarter: 2023Q4

REPORT INFORMATION
  Report Type: Spontaneous
  Country: US (occurrence: US)
  Receive Date: 20230726
  Receipt Date: 20231017
  Transmission Date: 20240109
  Serious: Yes (Other)
  Sender: FDA-Public Use
  Company Number: US-SA-2023SA160267

PATIENT
  Age: 37 Year
  Sex: Female

DRUGS (1)
  1. DUPIXENT [Suspect]
     Active Substance: DUPILUMAB
     Indication: Dermatitis atopic
     Dosage: 300 MG, QOW
     Route: 058

REACTIONS (10)
  - Chemical burns of eye [Unknown]
  - Scratch [Unknown]
  - Skin swelling [Unknown]
  - Skin fissures [Unknown]
  - Sleep disorder due to general medical condition, insomnia type [Unknown]
  - Eczema [Unknown]
  - Pruritus [Unknown]
  - Arthralgia [Unknown]
  - Dry eye [Unknown]
  - Injection site erythema [Unknown]

NARRATIVE: CASE EVENT DATE: 20230601
